FAERS Safety Report 15953340 (Version 1)
Quarter: 2019Q1

REPORT INFORMATION
  Report Type: Spontaneous
  Country: US (occurrence: US)
  Receive Date: 20190212
  Receipt Date: 20190212
  Transmission Date: 20190417
  Serious: No
  Sender: FDA-Public Use
  Company Number: US-009507513-1901USA011293

PATIENT
  Sex: Female

DRUGS (4)
  1. GANIRELIX ACETATE INJECTION [Suspect]
     Active Substance: GANIRELIX ACETATE
     Indication: INFERTILITY FEMALE
     Dosage: 250 MICROGRAM, QD, UTD
     Route: 058
     Dates: start: 20180123
  2. FOLLISTIM [Concomitant]
     Active Substance: FOLLITROPIN
  3. ESTRADIOL. [Concomitant]
     Active Substance: ESTRADIOL
  4. MENOPUR [Concomitant]
     Active Substance: FOLLITROPIN\LUTEINIZING HORMONE

REACTIONS (3)
  - Headache [Unknown]
  - Nausea [Unknown]
  - Hot flush [Unknown]
